FAERS Safety Report 5381335-5 (Version None)
Quarter: 2007Q2

REPORT INFORMATION
  Report Type: 
  Country: None (occurrence: None)
  Receive Date: 20070629
  Receipt Date: 20061023
  Transmission Date: 20071010
  Serious: Yes (Other)
  Sender: FDA-Public Use
  Company Number: 2006129677

PATIENT
  Sex: Female

DRUGS (1)
  1. ZOLOFT [Suspect]
     Dosage: 500 MG (50  MG, 1 IN  1D)
     Dates: start: 20061023, end: 20061023

REACTIONS (10)
  - ABASIA [None]
  - ACCIDENTAL OVERDOSE [None]
  - AMNESIA [None]
  - BURNING SENSATION [None]
  - DYSPHONIA [None]
  - EXOPHTHALMOS [None]
  - HEADACHE [None]
  - MYDRIASIS [None]
  - TREMOR [None]
  - VOMITING [None]
